FAERS Safety Report 15331234 (Version 4)
Quarter: 2018Q4

REPORT INFORMATION
  Report Type: Report from Study
  Country: None (occurrence: IL)
  Receive Date: 20180829
  Receipt Date: 20181010
  Transmission Date: 20190204
  Serious: Yes (Life-Threatening, Hospitalization, Other)
  Sender: FDA-Public Use
  Company Number: IL-ABBVIE-18P-082-2440147-00

PATIENT
  Age: 80 Year
  Sex: Female

DRUGS (14)
  1. VENETOCLAX. [Suspect]
     Active Substance: VENETOCLAX
     Route: 048
     Dates: start: 20180103, end: 20180103
  2. VENETOCLAX. [Suspect]
     Active Substance: VENETOCLAX
     Route: 048
     Dates: start: 20180126, end: 20180803
  3. OFLOXACIN. [Concomitant]
     Active Substance: OFLOXACIN
     Indication: VITRECTOMY
     Route: 047
     Dates: start: 20180531
  4. MAXITROL [Concomitant]
     Active Substance: DEXAMETHASONE\NEOMYCIN SULFATE\POLYMYXIN B SULFATE
     Indication: VITRECTOMY
     Dosage: 1 OINTMENT
     Route: 047
     Dates: start: 20180531
  5. ENOXAPARIN SODIUM. [Concomitant]
     Active Substance: ENOXAPARIN SODIUM
     Indication: EMBOLISM
     Route: 058
     Dates: start: 20180514
  6. NEPAFENAC [Concomitant]
     Active Substance: NEPAFENAC
     Indication: VITRECTOMY
     Route: 047
     Dates: start: 20180531
  7. VENETOCLAX. [Suspect]
     Active Substance: VENETOCLAX
     Indication: ACUTE MYELOID LEUKAEMIA
     Route: 048
     Dates: start: 20180102, end: 20180102
  8. PREDNISOLONE. [Concomitant]
     Active Substance: PREDNISOLONE
     Indication: LENS DISLOCATION
     Route: 047
     Dates: start: 20180531
  9. PREDNISOLONE. [Concomitant]
     Active Substance: PREDNISOLONE
     Indication: VITRECTOMY
  10. VENETOCLAX. [Suspect]
     Active Substance: VENETOCLAX
     Route: 048
     Dates: start: 20180104, end: 20180124
  11. VENETOCLAX. [Suspect]
     Active Substance: VENETOCLAX
     Route: 048
     Dates: start: 20180125, end: 20180125
  12. ALLOPURINOL. [Concomitant]
     Active Substance: ALLOPURINOL
     Indication: PROPHYLAXIS
     Route: 048
     Dates: start: 20171225, end: 20180107
  13. NORMAL SALINE SOLUTION 0.45-0.9% [Concomitant]
     Indication: PROPHYLAXIS
     Route: 042
     Dates: start: 20171224, end: 20180107
  14. AZACITIDINE. [Suspect]
     Active Substance: AZACITIDINE
     Indication: ACUTE MYELOID LEUKAEMIA
     Dosage: DAYS 1-7 OF EACH 28-DAY CYCLE
     Route: 058
     Dates: start: 20180102, end: 20180718

REACTIONS (1)
  - Osteomyelitis [Recovered/Resolved]

NARRATIVE: CASE EVENT DATE: 20180802
